FAERS Safety Report 7989976-3 (Version None)
Quarter: 2011Q4

REPORT INFORMATION
  Report Type: 
  Country: None (occurrence: None)
  Receive Date: 20111219
  Receipt Date: 20110614
  Transmission Date: 20120403
  Serious: No
  Sender: FDA-Public Use
  Company Number: US-ASTRAZENECA-2011SE36346

PATIENT
  Age: 49 Year
  Sex: Male

DRUGS (4)
  1. AMLODIPINE/BENZO [Concomitant]
  2. CRESTOR [Suspect]
     Route: 048
  3. METOPROLOL TARTRATE [Concomitant]
  4. PLAVIX [Concomitant]

REACTIONS (3)
  - ARTIFICIAL HEART DEVICE USER [None]
  - CARDIAC DISORDER [None]
  - PROSTHESIS USER [None]
